FAERS Safety Report 19973785 (Version 1)
Quarter: 2021Q4

REPORT INFORMATION
  Report Type: Spontaneous
  Country: US (occurrence: US)
  Receive Date: 20211020
  Receipt Date: 20211020
  Transmission Date: 20220303
  Serious: Yes (Hospitalization, Other)
  Sender: FDA-Public Use
  Company Number: None

PATIENT
  Age: 41 Year
  Sex: Female
  Weight: 130.6 kg

DRUGS (22)
  1. INJECTAFER [Suspect]
     Active Substance: FERRIC CARBOXYMALTOSE
     Indication: Iron deficiency anaemia
     Dosage: ?          OTHER FREQUENCY:ONCE;
     Route: 042
  2. ALBUTEROL [Concomitant]
     Active Substance: ALBUTEROL
  3. ASPIRIN [Concomitant]
     Active Substance: ASPIRIN
  4. caredilol [Concomitant]
  5. certrizine [Concomitant]
  6. CLONAZEPAM [Concomitant]
     Active Substance: CLONAZEPAM
  7. CYCLOBENZAPRINE [Concomitant]
     Active Substance: CYCLOBENZAPRINE
  8. DEXLANSOPRAZOLE [Concomitant]
     Active Substance: DEXLANSOPRAZOLE
  9. DULAGLUTIDE [Concomitant]
     Active Substance: DULAGLUTIDE
  10. DULOXETINE [Concomitant]
     Active Substance: DULOXETINE
  11. ERYTHROMYCIN [Concomitant]
     Active Substance: ERYTHROMYCIN
  12. HYDROMORPHONE [Concomitant]
     Active Substance: HYDROMORPHONE
  13. INSULIN NOS [Concomitant]
     Active Substance: INSULIN NOS
  14. DUONEB [Concomitant]
     Active Substance: ALBUTEROL SULFATE\IPRATROPIUM BROMIDE
  15. LOSARTAN [Concomitant]
     Active Substance: LOSARTAN
  16. MORPHINE [Concomitant]
     Active Substance: MORPHINE
  17. VITAMINS [Concomitant]
     Active Substance: VITAMINS
  18. PREGABALIN [Concomitant]
     Active Substance: PREGABALIN
  19. RIVAROXABAN [Concomitant]
     Active Substance: RIVAROXABAN
  20. ROPINIROLE [Concomitant]
     Active Substance: ROPINIROLE
  21. SPIRONOLACTONE [Concomitant]
     Active Substance: SPIRONOLACTONE
  22. XARELTO [Concomitant]
     Active Substance: RIVAROXABAN

REACTIONS (5)
  - Sepsis [None]
  - Abdominal pain [None]
  - Headache [None]
  - Cough [None]
  - Vomiting [None]
